FAERS Safety Report 18119098 (Version 1)
Quarter: 2020Q3

REPORT INFORMATION
  Report Type: Spontaneous
  Country: SE (occurrence: SE)
  Receive Date: 20200806
  Receipt Date: 20200806
  Transmission Date: 20201103
  Serious: Yes (Death, Other)
  Sender: FDA-Public Use
  Company Number: SE-GLAXOSMITHKLINE-SE2020151181

PATIENT
  Sex: Male

DRUGS (1)
  1. VOLTAREN (DICLOFENAC POTASSIUM) [Suspect]
     Active Substance: DICLOFENAC POTASSIUM
     Indication: INFLAMMATION
     Dosage: UNK

REACTIONS (3)
  - Drug intolerance [Unknown]
  - Multiple organ dysfunction syndrome [Unknown]
  - Multiple organ dysfunction syndrome [Fatal]
